FAERS Safety Report 23469481 (Version 1)
Quarter: 2024Q1

REPORT INFORMATION
  Report Type: Spontaneous
  Country: FR (occurrence: FR)
  Receive Date: 20240202
  Receipt Date: 20240202
  Transmission Date: 20240410
  Serious: Yes (Hospitalization, Other)
  Sender: FDA-Public Use
  Company Number: FR-AFSSAPS-PO2024000021

PATIENT
  Age: 17 Year
  Sex: Male
  Weight: 62 kg

DRUGS (2)
  1. ACETAMINOPHEN [Suspect]
     Active Substance: ACETAMINOPHEN
     Indication: Toxicity to various agents
     Dosage: 24 GRAM, 1 TOTAL
     Route: 048
     Dates: start: 20231204, end: 20231204
  2. ACETYLCYSTEINE [Suspect]
     Active Substance: ACETYLCYSTEINE
     Indication: Toxicity to various agents
     Dosage: 24 GRAM, 1 TOTAL
     Route: 042
     Dates: start: 20231204, end: 20231204

REACTIONS (3)
  - Hepatic cytolysis [Recovered/Resolved]
  - Coagulation factor V level decreased [Recovered/Resolved]
  - Prothrombin time ratio decreased [Recovered/Resolved]

NARRATIVE: CASE EVENT DATE: 20231204
